FAERS Safety Report 8118393-0 (Version None)
Quarter: 2012Q1

REPORT INFORMATION
  Report Type: 
  Country: None (occurrence: None)
  Receive Date: 20120207
  Receipt Date: 20110516
  Transmission Date: 20120608
  Serious: Yes (Death, Other)
  Sender: FDA-Public Use
  Company Number: FR-CELGENEUS-056-21880-11051876

PATIENT

DRUGS (1)
  1. REVLIMID [Suspect]
     Route: 048

REACTIONS (11)
  - FEBRILE NEUTROPENIA [None]
  - ACUTE MYELOID LEUKAEMIA [None]
  - ANAEMIA [None]
  - ASTHENIA [None]
  - RASH [None]
  - DIARRHOEA [None]
  - PRURITUS [None]
  - LEUKOPENIA [None]
  - NEUTROPENIA [None]
  - THROMBOCYTOPENIA [None]
  - EMBOLISM [None]
